FAERS Safety Report 23264818 (Version 1)
Quarter: 2023Q4

REPORT INFORMATION
  Report Type: Spontaneous
  Country: US (occurrence: US)
  Receive Date: 20231206
  Receipt Date: 20231206
  Transmission Date: 20240109
  Serious: No
  Sender: FDA-Public Use
  Company Number: US-AMGEN-USASP2023213686

PATIENT

DRUGS (3)
  1. BEVACIZUMAB [Suspect]
     Active Substance: BEVACIZUMAB
     Indication: Hereditary haemorrhagic telangiectasia
     Dosage: UNK
     Route: 042
  2. DOXYCYCLINE [Concomitant]
     Active Substance: DOXYCYCLINE
     Indication: Hereditary haemorrhagic telangiectasia
     Dosage: UNK
     Route: 065
  3. POMALIDOMIDE [Concomitant]
     Active Substance: POMALIDOMIDE
     Indication: Hereditary haemorrhagic telangiectasia
     Dosage: UNK
     Route: 065

REACTIONS (2)
  - Adverse drug reaction [Unknown]
  - Off label use [Unknown]
